FAERS Safety Report 18857516 (Version 4)
Quarter: 2021Q3

REPORT INFORMATION
  Report Type: Other
  Country: RS (occurrence: RS)
  Receive Date: 20210208
  Receipt Date: 20210817
  Transmission Date: 20211014
  Serious: No
  Sender: FDA-Public Use
  Company Number: RS-ROCHE-2763586

PATIENT
  Age: 36 Year
  Sex: Female
  Weight: 83 kg

DRUGS (8)
  1. METHYLPREDNISOLONE. [Concomitant]
     Active Substance: METHYLPREDNISOLONE
     Dosage: ONCE BEFORE INFUSION
     Route: 042
     Dates: start: 20201214, end: 20201214
  2. METHYLPREDNISOLONE. [Concomitant]
     Active Substance: METHYLPREDNISOLONE
     Dosage: ONCE BEFORE INFUSION
     Route: 042
     Dates: start: 20210225, end: 20210225
  3. PANTOPRAZOL [Concomitant]
     Active Substance: PANTOPRAZOLE SODIUM
     Dosage: ONCE BEFORE INFUSION
     Route: 048
     Dates: start: 20201214, end: 20201214
  4. PARACETAMOL [Concomitant]
     Active Substance: ACETAMINOPHEN
     Route: 048
     Dates: start: 20201214, end: 20201214
  5. CHLOROPYRAMINE [Concomitant]
     Active Substance: CHLOROPYRAMINE
     Dosage: ONCE BEFORE INFUSION
     Route: 030
     Dates: start: 20201214, end: 20201214
  6. OCRELIZUMAB. [Suspect]
     Active Substance: OCRELIZUMAB
     Indication: PRIMARY PROGRESSIVE MULTIPLE SCLEROSIS
     Dosage: ON 25/FEB/2021, SHE RECEIVED MOST RECENT DOSE OF STUDY DRUG OF INTRAVENOUS (IV) OCRELIZUMAB AT 300 M
     Route: 042
     Dates: start: 20201214
  7. CHLOROPYRAMINE [Concomitant]
     Active Substance: CHLOROPYRAMINE
     Dosage: ONCE BEFORE INFUSION
     Route: 030
     Dates: start: 20210225, end: 20210225
  8. PANTOPRAZOL [Concomitant]
     Active Substance: PANTOPRAZOLE SODIUM
     Dosage: ONCE BEFORE INFUSION
     Route: 048
     Dates: start: 20210225, end: 20210225

REACTIONS (1)
  - COVID-19 [Recovered/Resolved]

NARRATIVE: CASE EVENT DATE: 20201224
